FAERS Safety Report 25129784 (Version 1)
Quarter: 2025Q1

REPORT INFORMATION
  Report Type: Report from Study
  Country: US (occurrence: US)
  Receive Date: 20250327
  Receipt Date: 20250327
  Transmission Date: 20250409
  Serious: Yes (Other)
  Sender: JAZZ
  Company Number: US-JAZZ PHARMACEUTICALS-2025-US-007812

PATIENT
  Age: 26 Year
  Sex: Female

DRUGS (9)
  1. XYWAV [Suspect]
     Active Substance: CALCIUM OXYBATE\MAGNESIUM OXYBATE\POTASSIUM OXYBATE\SODIUM OXYBATE
     Indication: Hypersomnia
  2. TRETINOIN [Concomitant]
     Active Substance: TRETINOIN
     Indication: Product used for unknown indication
     Dates: start: 20230927
  3. DYANAVEL XR [Concomitant]
     Active Substance: AMPHETAMINE
     Indication: Poor quality sleep
     Dates: start: 20240201
  4. VITAMIN D3 [Concomitant]
     Active Substance: CHOLECALCIFEROL
     Indication: Product used for unknown indication
     Dates: start: 20240201
  5. ZYRTEC [Concomitant]
     Active Substance: CETIRIZINE HYDROCHLORIDE
     Indication: Inflammation
     Dates: start: 20250310
  6. BENZOYL PEROXIDE\CLINDAMYCIN [Concomitant]
     Active Substance: BENZOYL PEROXIDE\CLINDAMYCIN
     Indication: Acne
     Dates: start: 20250101
  7. ZAFIRLUKAST [Concomitant]
     Active Substance: ZAFIRLUKAST
     Indication: Mast cell activation syndrome
     Dates: start: 20250224
  8. DOXYCYCLINE HYCLATE [Concomitant]
     Active Substance: DOXYCYCLINE HYCLATE
     Indication: Product used for unknown indication
     Dates: start: 20250901
  9. VITAMIN B12 [Concomitant]
     Active Substance: CYANOCOBALAMIN
     Indication: Product used for unknown indication
     Dates: start: 20250101

REACTIONS (2)
  - Mast cell activation syndrome [Unknown]
  - Postural orthostatic tachycardia syndrome [Unknown]

NARRATIVE: CASE EVENT DATE: 20250101
